FAERS Safety Report 6061280-2 (Version None)
Quarter: 2009Q1

REPORT INFORMATION
  Report Type: 
  Country: None (occurrence: None)
  Receive Date: 20090202
  Receipt Date: 20081210
  Transmission Date: 20090719
  Serious: Yes (Hospitalization)
  Sender: FDA-Public Use
  Company Number: DE-PFIZER INC-2008152230

PATIENT

DRUGS (21)
  1. BLINDED *PLACEBO [Suspect]
     Indication: FEBRILE NEUTROPENIA
     Dosage: INTERVAL: DAILY
     Route: 042
     Dates: start: 20081019, end: 20081021
  2. BLINDED VORICONAZOLE [Suspect]
     Indication: FEBRILE NEUTROPENIA
     Dosage: INTERVAL: DAILY
     Route: 042
     Dates: start: 20081019, end: 20081021
  3. BLINDED VORICONAZOLE [Suspect]
     Dosage: INTERVAL: DAILY
     Route: 042
     Dates: start: 20081019, end: 20081021
  4. FRAGMIN [Suspect]
     Dosage: 5000 IU, 1X/DAY
     Route: 058
     Dates: start: 20081007, end: 20081010
  5. KALINOR-BRAUSETABLETTEN [Concomitant]
     Dosage: UNK
     Route: 048
     Dates: start: 20081017, end: 20081017
  6. KALINOR-BRAUSETABLETTEN [Concomitant]
     Dosage: UNK
     Route: 048
     Dates: start: 20081020, end: 20081020
  7. KALINOR-BRAUSETABLETTEN [Concomitant]
     Dosage: UNK
     Route: 048
     Dates: start: 20081023, end: 20081023
  8. LASIX [Concomitant]
     Dosage: UNK
     Route: 048
     Dates: start: 20081017
  9. CETIRIZINE [Concomitant]
     Dosage: 10 MG, UNK
     Route: 048
     Dates: start: 20081009
  10. ACIC [Concomitant]
     Dosage: UNK
     Route: 048
     Dates: start: 20080930
  11. CIPROFLOXACIN HCL [Concomitant]
     Dosage: UNK
     Route: 048
     Dates: start: 20080930
  12. TURIXIN [Concomitant]
     Dosage: UNK
     Route: 048
     Dates: start: 20080930, end: 20081030
  13. AMPHOTERICIN B [Concomitant]
     Dosage: UNK
     Route: 048
     Dates: start: 20080930, end: 20081030
  14. GRANOCYTE [Concomitant]
     Dosage: UNK
     Route: 048
     Dates: start: 20081011, end: 20081103
  15. PRIMAXIN [Concomitant]
     Dosage: 500 MG, UNK
     Route: 042
     Dates: start: 20081020, end: 20081021
  16. VANCOMYCIN [Concomitant]
     Dosage: 1 G, UNK
     Route: 042
     Dates: start: 20081020, end: 20081030
  17. PARACETAMOL [Concomitant]
     Dosage: UNK
     Route: 048
     Dates: start: 20081020, end: 20081021
  18. POTASSIUM CHLORIDE [Concomitant]
     Dosage: UNK
     Route: 042
     Dates: start: 20081022, end: 20081023
  19. PERFALGAN [Concomitant]
     Dosage: 1 G, UNK
     Route: 042
     Dates: start: 20081021, end: 20081021
  20. TAZOBACTAM [Concomitant]
     Dosage: UNK
     Route: 042
     Dates: start: 20081022, end: 20081030
  21. VFEND [Concomitant]
     Dosage: UNK
     Route: 042
     Dates: start: 20081022, end: 20081030

REACTIONS (1)
  - ABSCESS [None]
